FAERS Safety Report 4599754-3 (Version None)
Quarter: 2005Q1

REPORT INFORMATION
  Report Type: 
  Country: None (occurrence: None)
  Receive Date: 20050304
  Receipt Date: 20050304
  Transmission Date: 20050727
  Serious: No
  Sender: FDA-Public Use
  Company Number: None

PATIENT
  Age: 19 Year
  Sex: Male
  Weight: 72.5755 kg

DRUGS (1)
  1. PROPECIA [Suspect]
     Indication: HAIR GROWTH ABNORMAL
     Dates: start: 20050101, end: 20050226

REACTIONS (2)
  - ANGER [None]
  - IMPRISONMENT [None]
